FAERS Safety Report 14227060 (Version 1)
Quarter: 2017Q4

REPORT INFORMATION
  Report Type: Spontaneous
  Country: US (occurrence: None)
  Receive Date: 20171127
  Receipt Date: 20171127
  Transmission Date: 20180321
  Serious: Yes (Other)
  Sender: FDA-Public Use
  Company Number: None

PATIENT
  Age: 28 Year
  Sex: Female
  Weight: 54.88 kg

DRUGS (2)
  1. PARAGARD T 380A [Suspect]
     Active Substance: COPPER
     Indication: SEXUAL TRANSMISSION OF INFECTION
     Dates: start: 20171025, end: 20171030
  2. PARAGARD T 380A [Suspect]
     Active Substance: COPPER
     Indication: CONTRACEPTION
     Dates: start: 20171025, end: 20171030

REACTIONS (2)
  - Migraine [None]
  - Dyspnoea [None]

NARRATIVE: CASE EVENT DATE: 20171025
